APPROVED DRUG PRODUCT: CAPTOPRIL AND HYDROCHLOROTHIAZIDE
Active Ingredient: CAPTOPRIL; HYDROCHLOROTHIAZIDE
Strength: 25MG;15MG
Dosage Form/Route: TABLET;ORAL
Application: A074788 | Product #001
Applicant: STRIDES PHARMA INTERNATIONAL AG
Approved: Dec 29, 1997 | RLD: No | RS: No | Type: DISCN